FAERS Safety Report 7051065-2 (Version None)
Quarter: 2010Q4

REPORT INFORMATION
  Report Type: 
  Country: None (occurrence: None)
  Receive Date: 20101019
  Receipt Date: 20100416
  Transmission Date: 20110411
  Serious: Yes (Other)
  Sender: FDA-Public Use
  Company Number: US-BAYER-201017219NA

PATIENT
  Age: 27 Year
  Sex: Female
  Weight: 61 kg

DRUGS (9)
  1. YAZ [Suspect]
     Indication: DYSMENORRHOEA
     Route: 048
     Dates: start: 20071001, end: 20080501
  2. RELPAX [Concomitant]
     Indication: MIGRAINE
     Dates: start: 20071001
  3. LORAZEPAM [Concomitant]
     Indication: MIGRAINE
     Dates: start: 20071001
  4. PEPTO-BISMOL [Concomitant]
     Indication: IRRITABLE BOWEL SYNDROME
  5. PRILOSEC [Concomitant]
     Indication: ABDOMINAL PAIN UPPER
  6. GAS X [Concomitant]
     Indication: ABDOMINAL PAIN UPPER
  7. MYLANTA [Concomitant]
     Indication: DYSPEPSIA
  8. PROTONIX [Concomitant]
     Indication: GASTROOESOPHAGEAL REFLUX DISEASE
  9. HYOSCYAMINE [Concomitant]
     Indication: ABDOMINAL PAIN UPPER

REACTIONS (5)
  - ABDOMINAL PAIN UPPER [None]
  - BILIARY COLIC [None]
  - ENDOMETRIOSIS [None]
  - GALLBLADDER DISORDER [None]
  - HEPATOSPLENOMEGALY [None]
